FAERS Safety Report 5063272-9 (Version None)
Quarter: 2006Q3

REPORT INFORMATION
  Report Type: 
  Country: None (occurrence: None)
  Receive Date: 20060727
  Receipt Date: 20060710
  Transmission Date: 20061208
  Serious: Yes (Other)
  Sender: FDA-Public Use
  Company Number: 2006085651

PATIENT
  Age: 71 Year
  Sex: Female
  Weight: 69.8539 kg

DRUGS (4)
  1. ZYVOX [Suspect]
     Indication: PNEUMONIA
     Dosage: 1200 MG (600 MG, 2 IN 1 D), ORAL
     Route: 048
     Dates: start: 20060628, end: 20060705
  2. LISINOPRIL [Concomitant]
  3. ATENOLOL [Concomitant]
  4. ZOLOFT [Concomitant]

REACTIONS (6)
  - DIARRHOEA [None]
  - FEELING ABNORMAL [None]
  - INSOMNIA [None]
  - ORAL INTAKE REDUCED [None]
  - PULMONARY FIBROSIS [None]
  - STOMACH DISCOMFORT [None]
